FAERS Safety Report 9778781 (Version 1)
Quarter: 2013Q4

REPORT INFORMATION
  Report Type: Report from Study
  Country: CA (occurrence: CA)
  Receive Date: 20131223
  Receipt Date: 20131223
  Transmission Date: 20140711
  Serious: Yes (Hospitalization)
  Sender: FDA-Public Use
  Company Number: CA-JNJFOC-20131209871

PATIENT
  Age: 16 Year
  Sex: Female
  Weight: 36 kg

DRUGS (1)
  1. REMICADE [Suspect]
     Indication: CROHN^S DISEASE
     Dosage: THE THERAPY DURATION WAS FOR 2 HOURS
     Route: 042
     Dates: start: 20110221

REACTIONS (1)
  - Crohn^s disease [Not Recovered/Not Resolved]
